FAERS Safety Report 15500654 (Version 1)
Quarter: 2018Q4

REPORT INFORMATION
  Report Type: Spontaneous
  Country: US (occurrence: US)
  Receive Date: 20181015
  Receipt Date: 20181015
  Transmission Date: 20190205
  Serious: Yes (Hospitalization)
  Sender: FDA-Public Use
  Company Number: PHEH2018US042833

PATIENT
  Sex: Female

DRUGS (1)
  1. ZOMETA [Suspect]
     Active Substance: ZOLEDRONIC ACID
     Indication: BONE DISORDER
     Dosage: UNK
     Route: 042
     Dates: start: 20180823

REACTIONS (14)
  - Muscle tightness [Unknown]
  - Fatigue [Unknown]
  - Asthenia [Unknown]
  - Chest pain [Unknown]
  - Myalgia [Unknown]
  - Cerebrovascular accident [Unknown]
  - Dyspnoea [Unknown]
  - Adverse event [None]
  - Limb discomfort [Unknown]
  - Heart rate increased [Unknown]
  - Headache [Unknown]
  - Chills [Unknown]
  - Nasopharyngitis [Unknown]
  - Dyspepsia [Unknown]
